FAERS Safety Report 14964010 (Version 1)
Quarter: 2018Q2

REPORT INFORMATION
  Report Type: Spontaneous
  Country: US (occurrence: US)
  Receive Date: 20180510
  Receipt Date: 20180510
  Transmission Date: 20180711
  Serious: Yes (Other)
  Sender: FDA-Public Use
  Company Number: None

PATIENT
  Age: 27 Year
  Sex: Female
  Weight: 56.25 kg

DRUGS (4)
  1. PAROXETINE. [Concomitant]
     Active Substance: PAROXETINE
  2. OMEPRAZOLE MAGNESIUM DELAYED RELEASE CAPSULES 20.6 MG/ ACID REDUCER [Suspect]
     Active Substance: OMEPRAZOLE MAGNESIUM
     Indication: REFLUX LARYNGITIS
     Dosage: ?          QUANTITY:2 CAPSULE(S);?
     Route: 048
     Dates: start: 20170825, end: 20170920
  3. TRAZEDONE [Concomitant]
  4. MODAFINIL. [Concomitant]
     Active Substance: MODAFINIL

REACTIONS (4)
  - Panic attack [None]
  - Clostridium difficile infection [None]
  - Confusional state [None]
  - Disease recurrence [None]

NARRATIVE: CASE EVENT DATE: 20170920
